FAERS Safety Report 20824649 (Version 1)
Quarter: 2022Q2

REPORT INFORMATION
  Report Type: Spontaneous
  Country: US (occurrence: US)
  Receive Date: 20220513
  Receipt Date: 20220513
  Transmission Date: 20220720
  Serious: No
  Sender: FDA-Public Use
  Company Number: US-BIOVITRUM-2022US05975

PATIENT
  Sex: Female

DRUGS (2)
  1. DOPTELET [Suspect]
     Active Substance: AVATROMBOPAG MALEATE
     Indication: Immune thrombocytopenia
     Route: 048
     Dates: start: 20220404
  2. DOPTELET [Suspect]
     Active Substance: AVATROMBOPAG MALEATE

REACTIONS (3)
  - Platelet count increased [Unknown]
  - Headache [Recovered/Resolved]
  - Product dose omission issue [Unknown]
